FAERS Safety Report 4358433-8 (Version None)
Quarter: 2004Q2

REPORT INFORMATION
  Report Type: 
  Country: None (occurrence: None)
  Receive Date: 20040511
  Receipt Date: 20040427
  Transmission Date: 20050107
  Serious: Yes (Hospitalization)
  Sender: FDA-Public Use
  Company Number: 2004IC000087

PATIENT
  Age: 37 Year
  Sex: Female

DRUGS (3)
  1. BONTRIL [Suspect]
     Indication: INCREASED APPETITE
     Dosage: 105 MG; TWICE A DAY;
  2. CIPROTERON [Concomitant]
  3. ETHINYLSTRADIOL [Concomitant]

REACTIONS (13)
  - CARDIAC MURMUR [None]
  - CONGESTIVE CARDIOMYOPATHY [None]
  - CYANOSIS [None]
  - DILATATION ATRIAL [None]
  - DILATATION VENTRICULAR [None]
  - ECHOCARDIOGRAM ABNORMAL [None]
  - EPIGASTRIC DISCOMFORT [None]
  - GALLOP RHYTHM PRESENT [None]
  - PALPITATIONS [None]
  - TACHYCARDIA [None]
  - TACHYPNOEA [None]
  - VENTRICULAR ARRHYTHMIA [None]
  - VENTRICULAR HYPOKINESIA [None]
